FAERS Safety Report 5182662-7 (Version None)
Quarter: 2006Q4

REPORT INFORMATION
  Report Type: 
  Country: None (occurrence: None)
  Receive Date: 20061220
  Receipt Date: 20061102
  Transmission Date: 20070319
  Serious: Yes (Hospitalization, Other)
  Sender: FDA-Public Use
  Company Number: US-ELI_LILLY_AND_COMPANY-US200611000669

PATIENT
  Age: 75 Year
  Sex: Male

DRUGS (2)
  1. FORTEO [Suspect]
     Indication: OSTEOPOROSIS
     Dosage: UNK, UNK
     Dates: start: 20060201, end: 20061026
  2. FORTEO [Suspect]
     Dates: start: 20061102, end: 20061123

REACTIONS (15)
  - CHILLS [None]
  - CHOLECYSTITIS INFECTIVE [None]
  - DIARRHOEA [None]
  - DIZZINESS [None]
  - DYSPNOEA [None]
  - FEELING ABNORMAL [None]
  - INFLAMMATION [None]
  - LIVER DISORDER [None]
  - LUNG DISORDER [None]
  - NAUSEA [None]
  - NIGHT SWEATS [None]
  - OXYGEN SATURATION DECREASED [None]
  - PULMONARY FIBROSIS [None]
  - PYREXIA [None]
  - RESPIRATORY TRACT IRRITATION [None]
